FAERS Safety Report 6444829-7 (Version None)
Quarter: 2009Q4

REPORT INFORMATION
  Report Type: 
  Country: None (occurrence: None)
  Receive Date: 20091118
  Receipt Date: 20091106
  Transmission Date: 20100525
  Serious: Yes (Hospitalization)
  Sender: FDA-Public Use
  Company Number: PHEH2009US13695

PATIENT
  Sex: Female
  Weight: 140.5 kg

DRUGS (12)
  1. FEMARA [Suspect]
     Indication: BREAST CANCER METASTATIC
     Dosage: 2.5 MG, QD
     Route: 048
     Dates: start: 20090701
  2. TYLENOL (CAPLET) [Concomitant]
  3. LEVOTHYROXINE SODIUM [Concomitant]
     Dosage: 0.05 MG Q DAY
     Route: 048
  4. TRAMADOL [Concomitant]
     Dosage: 50 MG  Q12HR PRN
     Route: 048
  5. EZETIMIBE [Concomitant]
     Dosage: 10 MG Q DAY
     Route: 048
  6. LOSARTAN POTASSIUM [Concomitant]
     Dosage: 100 MG, QD
     Route: 048
  7. MONTELUKAST SODIUM [Concomitant]
     Dosage: 10 MG Q PM
     Route: 048
  8. FUROSEMIDE [Concomitant]
     Dosage: 80 MG, BID
     Route: 048
  9. DIGOXIN [Concomitant]
     Dosage: 0.125 MG, QD
     Route: 048
  10. HYDRALAZINE HCL [Concomitant]
     Dosage: 50 MG, TID
     Route: 048
  11. LISINOPRIL [Concomitant]
     Dosage: 40 MG, QD
     Route: 048
  12. TIZANIDINE HCL [Concomitant]
     Dosage: 4 MG, TID
     Route: 048

REACTIONS (20)
  - ARTHRALGIA [None]
  - ASTHENIA [None]
  - BACK PAIN [None]
  - BLOOD ALBUMIN DECREASED [None]
  - BLOOD CREATINE PHOSPHOKINASE INCREASED [None]
  - CARBON DIOXIDE INCREASED [None]
  - EMOTIONAL DISTRESS [None]
  - EXOSTOSIS [None]
  - HAEMATOCRIT DECREASED [None]
  - HAEMOGLOBIN DECREASED [None]
  - MUSCLE SPASMS [None]
  - MUSCULOSKELETAL PAIN [None]
  - MYALGIA [None]
  - OSTEOARTHRITIS [None]
  - PAIN [None]
  - RADICULOPATHY [None]
  - RED BLOOD CELL COUNT DECREASED [None]
  - RED CELL DISTRIBUTION WIDTH INCREASED [None]
  - SCIATICA [None]
  - VOMITING [None]
